FAERS Safety Report 6879235-4 (Version None)
Quarter: 2010Q3

REPORT INFORMATION
  Report Type: 
  Country: None (occurrence: None)
  Receive Date: 20100728
  Receipt Date: 20100714
  Transmission Date: 20110219
  Serious: Yes (Hospitalization, Other)
  Sender: FDA-Public Use
  Company Number: PL-ELI_LILLY_AND_COMPANY-PL201007004386

PATIENT
  Sex: Female
  Weight: 50 kg

DRUGS (3)
  1. GEMCITABINE HCL [Suspect]
     Dosage: 1875 MG, UNKNOWN
     Route: 065
     Dates: start: 20100330
  2. CISPLATIN [Suspect]
     Dosage: 113 MG, UNKNOWN
     Route: 065
     Dates: start: 20100330
  3. ALCOHOL [Concomitant]
     Dates: start: 20100710

REACTIONS (1)
  - DELIRIUM [None]
